FAERS Safety Report 7005658-9 (Version None)
Quarter: 2010Q3

REPORT INFORMATION
  Report Type: 
  Country: None (occurrence: None)
  Receive Date: 20100917
  Receipt Date: 20100709
  Transmission Date: 20110219
  Serious: Yes (Other)
  Sender: FDA-Public Use
  Company Number: DSA_43484_2010

PATIENT
  Sex: Male

DRUGS (3)
  1. XENAZINE [Suspect]
     Indication: HUNTINGTON'S DISEASE
     Dosage: ENTIRE MONTH SUPPLY ORAL, 25 MG BID ORAL
     Route: 048
     Dates: start: 20100301, end: 20100701
  2. XENAZINE [Suspect]
     Indication: HUNTINGTON'S DISEASE
     Dosage: ENTIRE MONTH SUPPLY ORAL, 25 MG BID ORAL
     Route: 048
     Dates: start: 20100704, end: 20100704
  3. RISPERDAL [Concomitant]

REACTIONS (2)
  - INTENTIONAL OVERDOSE [None]
  - SUICIDE ATTEMPT [None]
